FAERS Safety Report 5755535-6 (Version None)
Quarter: 2008Q2

REPORT INFORMATION
  Report Type: 
  Country: None (occurrence: None)
  Receive Date: 20080530
  Receipt Date: 20080530
  Transmission Date: 20081010
  Serious: Yes (Other)
  Sender: FDA-Public Use
  Company Number: None

PATIENT
  Sex: Female
  Weight: 71.6683 kg

DRUGS (2)
  1. GLEEVEC [Suspect]
     Indication: OVARIAN CANCER
     Dosage: 1 DAILY PO
     Route: 048
     Dates: start: 20080405, end: 20080504
  2. GLEEVEC [Suspect]
     Indication: OVARIAN CANCER
     Dosage: 1 DAILY PO
     Route: 048
     Dates: start: 20080509, end: 20080514

REACTIONS (2)
  - PLEURAL EFFUSION [None]
  - PLEURITIC PAIN [None]
